FAERS Safety Report 22952050 (Version 2)
Quarter: 2024Q1

REPORT INFORMATION
  Report Type: Report from Study
  Country: US (occurrence: US)
  Receive Date: 20230918
  Receipt Date: 20240108
  Transmission Date: 20240409
  Serious: No
  Sender: FDA-Public Use
  Company Number: US-GSK-US2023AMR122605

PATIENT
  Sex: Female

DRUGS (6)
  1. BELIMUMAB [Suspect]
     Active Substance: BELIMUMAB
     Indication: Polyarthritis
     Dosage: 200 MG/ML, WE
  2. BELIMUMAB [Suspect]
     Active Substance: BELIMUMAB
     Indication: Systemic lupus erythematosus
  3. BELIMUMAB [Suspect]
     Active Substance: BELIMUMAB
     Indication: Fibromyalgia
  4. BELIMUMAB [Suspect]
     Active Substance: BELIMUMAB
     Indication: Polyarthritis
     Dosage: UNK
     Dates: start: 202307
  5. BELIMUMAB [Suspect]
     Active Substance: BELIMUMAB
     Indication: Systemic lupus erythematosus
  6. BELIMUMAB [Suspect]
     Active Substance: BELIMUMAB
     Indication: Fibromyalgia

REACTIONS (3)
  - Pain in extremity [Unknown]
  - Inability to afford medication [Unknown]
  - Drug ineffective [Unknown]
